FAERS Safety Report 6185998-6 (Version None)
Quarter: 2009Q2

REPORT INFORMATION
  Report Type: 
  Country: None (occurrence: None)
  Receive Date: 20090511
  Receipt Date: 20090427
  Transmission Date: 20091009
  Serious: Yes (Hospitalization)
  Sender: FDA-Public Use
  Company Number: US-JNJFOC-20090406579

PATIENT
  Sex: Female
  Weight: 46.72 kg

DRUGS (9)
  1. INFLIXIMAB [Suspect]
     Route: 042
  2. INFLIXIMAB [Suspect]
     Route: 042
  3. INFLIXIMAB [Suspect]
     Route: 042
  4. INFLIXIMAB [Suspect]
     Route: 042
  5. INFLIXIMAB [Suspect]
     Route: 042
  6. INFLIXIMAB [Suspect]
     Indication: CROHN'S DISEASE
     Route: 042
  7. MESALAMINE [Concomitant]
     Indication: CROHN'S DISEASE
  8. ACETAMINOPHEN [Concomitant]
     Indication: PREMEDICATION
     Dosage: GIVEN PRIOR TO EVERY INFUSIONS
  9. ANTIHISTAMINES [Concomitant]
     Indication: PREMEDICATION
     Dosage: GIVEN PRIOR TO EVERY INFUSIONS

REACTIONS (1)
  - BREAST CANCER IN SITU [None]
